FAERS Safety Report 8993610 (Version 4)
Quarter: 2013Q1

REPORT INFORMATION
  Report Type: Spontaneous
  Country: US (occurrence: US)
  Receive Date: 20130102
  Receipt Date: 20130225
  Transmission Date: 20140127
  Serious: Yes (Other)
  Sender: FDA-Public Use
  Company Number: US-GILEAD-2012-0067040

PATIENT
  Sex: Female

DRUGS (1)
  1. LETAIRIS [Suspect]
     Indication: PULMONARY ARTERIAL HYPERTENSION
     Dosage: 5 MG, QD
     Route: 048
     Dates: start: 20121213

REACTIONS (7)
  - Oxygen saturation decreased [Unknown]
  - Drug ineffective [Unknown]
  - Unevaluable event [Unknown]
  - Dyspnoea [Unknown]
  - Oedema [Unknown]
  - Local swelling [Unknown]
  - Nasal congestion [Unknown]
